FAERS Safety Report 17881254 (Version 1)
Quarter: 2020Q2

REPORT INFORMATION
  Report Type: Spontaneous
  Country: FR (occurrence: FR)
  Receive Date: 20200610
  Receipt Date: 20200610
  Transmission Date: 20200714
  Serious: Yes (Hospitalization)
  Sender: FDA-Public Use
  Company Number: FR-CADILA HEALTHCARE LIMITED-FR-ZYDUS-051563

PATIENT

DRUGS (3)
  1. RAMIPRIL. [Suspect]
     Active Substance: RAMIPRIL
     Indication: HYPERTENSION
     Dosage: 150 MILLIGRAM, QD (15 TABLETS OF 10 MG EACH)
     Route: 048
  2. AMLODIPINE [Suspect]
     Active Substance: AMLODIPINE BESYLATE
     Indication: HYPERTENSION
     Dosage: 450 MILLIGRAM, QD (45 TABLETS OF 10 MG EACH)
     Route: 048
  3. BISOPROLOL [Suspect]
     Active Substance: BISOPROLOL
     Indication: HYPERTENSION
     Dosage: 160 MILLIGRAM, QD (16 TABLETS OF 10 MG EACH)
     Route: 048

REACTIONS (5)
  - Toxicity to various agents [Unknown]
  - Vasoplegia syndrome [Recovered/Resolved]
  - Pneumonitis [Recovered/Resolved]
  - Overdose [Unknown]
  - Sinus bradycardia [Unknown]
